FAERS Safety Report 13546199 (Version 2)
Quarter: 2017Q3

REPORT INFORMATION
  Report Type: Spontaneous
  Country: US (occurrence: US)
  Receive Date: 20170515
  Receipt Date: 20170825
  Transmission Date: 20171127
  Serious: No
  Sender: FDA-Public Use
  Company Number: US-TEVA-767943ACC

PATIENT
  Age: 21 Year
  Sex: Female
  Weight: 91.25 kg

DRUGS (1)
  1. PARAGARD T 380A [Suspect]
     Active Substance: COPPER
     Indication: CONTRACEPTION
     Dates: start: 20161229, end: 20170504

REACTIONS (3)
  - Pelvic pain [Unknown]
  - Ovarian cyst [Recovered/Resolved with Sequelae]
  - Device expulsion [Recovered/Resolved]

NARRATIVE: CASE EVENT DATE: 20170104
